FAERS Safety Report 9122121 (Version 1)
Quarter: 2013Q1

REPORT INFORMATION
  Report Type: Spontaneous
  Country: US (occurrence: US)
  Receive Date: 20130114
  Receipt Date: 20130114
  Transmission Date: 20140127
  Serious: Yes (Other)
  Sender: FDA-Public Use
  Company Number: US-009507513-0909USA02969

PATIENT
  Age: 6 Year
  Sex: Female
  Weight: 29.48 kg

DRUGS (2)
  1. SINGULAIR [Suspect]
     Indication: MULTIPLE ALLERGIES
     Dosage: 5 MG, QD
     Route: 048
     Dates: start: 20080401, end: 20081231
  2. SINGULAIR [Suspect]
     Indication: ASTHMA

REACTIONS (8)
  - Abnormal behaviour [Unknown]
  - Abdominal pain upper [Unknown]
  - Aggression [Unknown]
  - Attention deficit/hyperactivity disorder [Unknown]
  - Depression [Unknown]
  - Disturbance in attention [Unknown]
  - Educational problem [Unknown]
  - Adverse event [Unknown]
